FAERS Safety Report 5213633-X (Version None)
Quarter: 2007Q1

REPORT INFORMATION
  Report Type: 
  Country: None (occurrence: None)
  Receive Date: 20070119
  Receipt Date: 20070109
  Transmission Date: 20070707
  Serious: Yes (Death)
  Sender: FDA-Public Use
  Company Number: KR-PFIZER INC-2007003097

PATIENT
  Sex: Female
  Weight: 64.7 kg

DRUGS (5)
  1. ZYVOX [Suspect]
     Indication: PNEUMONIA
     Route: 042
     Dates: start: 20060721, end: 20060725
  2. HYDROCORTISONE [Concomitant]
     Route: 042
     Dates: start: 20060722, end: 20060725
  3. PIPERACILLIN SODIUM [Concomitant]
     Route: 042
     Dates: start: 20060721, end: 20060725
  4. TRANEXAMIC ACID [Concomitant]
     Route: 042
     Dates: start: 20060720, end: 20060725
  5. UNASYN [Concomitant]
     Route: 042
     Dates: start: 20060715, end: 20060725

REACTIONS (1)
  - DEATH [None]
